FAERS Safety Report 21499192 (Version 3)
Quarter: 2023Q1

REPORT INFORMATION
  Report Type: Report from Study
  Country: US (occurrence: US)
  Receive Date: 20221024
  Receipt Date: 20230119
  Transmission Date: 20230418
  Serious: Yes (Other)
  Sender: FDA-Public Use
  Company Number: US-TEVA-2022-US-2075729

PATIENT
  Age: 68 Year
  Sex: Female

DRUGS (1)
  1. AUSTEDO [Suspect]
     Active Substance: DEUTETRABENAZINE
     Indication: Tardive dyskinesia
     Dosage: 30 MILLIGRAM DAILY;
     Route: 065
     Dates: start: 20220820

REACTIONS (10)
  - Foreign body in throat [Unknown]
  - Breath sounds abnormal [Not Recovered/Not Resolved]
  - Hyperventilation [Not Recovered/Not Resolved]
  - Vomiting [Unknown]
  - Laryngospasm [Unknown]
  - Eating disorder [Unknown]
  - Product use complaint [Unknown]
  - Oropharyngeal discomfort [Unknown]
  - Oropharyngeal spasm [Unknown]
  - Sleep disorder [Unknown]

NARRATIVE: CASE EVENT DATE: 20220101
